FAERS Safety Report 12471728 (Version 1)
Quarter: 2016Q2

REPORT INFORMATION
  Report Type: Spontaneous
  Country: US (occurrence: None)
  Receive Date: 20160615
  Receipt Date: 20160615
  Transmission Date: 20160815
  Serious: Yes (Hospitalization)
  Sender: FDA-Public Use
  Company Number: None

PATIENT
  Age: 80 Year
  Sex: Female
  Weight: 70 kg

DRUGS (7)
  1. LITHIUM. [Suspect]
     Active Substance: LITHIUM
     Indication: BIPOLAR DISORDER
     Dosage: 300MG X 2 DAILY PO
     Route: 048
  2. MIRALAX [Concomitant]
     Active Substance: POLYETHYLENE GLYCOL 3350
  3. LASIX [Concomitant]
     Active Substance: FUROSEMIDE
  4. ZOFRAN [Concomitant]
     Active Substance: ONDANSETRON HYDROCHLORIDE
  5. ATIVAN [Concomitant]
     Active Substance: LORAZEPAM
  6. LOVENOX [Concomitant]
     Active Substance: ENOXAPARIN SODIUM
  7. PROLIXIN [Concomitant]
     Active Substance: FLUPHENAZINE HYDROCHLORIDE

REACTIONS (3)
  - Toxicity to various agents [None]
  - Dehydration [None]
  - Lethargy [None]

NARRATIVE: CASE EVENT DATE: 20151208
